FAERS Safety Report 7388465-7 (Version None)
Quarter: 2011Q2

REPORT INFORMATION
  Report Type: 
  Country: None (occurrence: None)
  Receive Date: 20110401
  Receipt Date: 20110321
  Transmission Date: 20111010
  Serious: Yes (Hospitalization)
  Sender: FDA-Public Use
  Company Number: PHHY2011DO22921

PATIENT
  Age: 76 Year
  Sex: Male

DRUGS (1)
  1. ACLASTA [Suspect]
     Indication: OSTEOPOROSIS
     Dosage: 5 MG
     Route: 042

REACTIONS (7)
  - BACK PAIN [None]
  - MYALGIA [None]
  - MALAISE [None]
  - NECK PAIN [None]
  - PYREXIA [None]
  - LEUKOCYTOSIS [None]
  - NAUSEA [None]
